FAERS Safety Report 9238718 (Version 1)
Quarter: 2013Q1

REPORT INFORMATION
  Report Type: Spontaneous
  Country: US (occurrence: None)
  Receive Date: 20121113
  Receipt Date: 20121113
  Transmission Date: 20140127
  Serious: No
  Sender: FDA-Public Use
  Company Number: PHEH2012US016389

PATIENT
  Sex: Male

DRUGS (1)
  1. ARCAPTA (INDACATEROL) UNKNOWN [Suspect]

REACTIONS (1)
  - Dizziness [None]
